FAERS Safety Report 23168115 (Version 6)
Quarter: 2024Q2

REPORT INFORMATION
  Report Type: Spontaneous
  Country: JP (occurrence: JP)
  Receive Date: 20231109
  Receipt Date: 20240515
  Transmission Date: 20240716
  Serious: Yes (Hospitalization, Other)
  Sender: FDA-Public Use
  Company Number: JP-shionogi-202308452_EXJ_P_1

PATIENT
  Age: 61 Year
  Sex: Male
  Weight: 75.2 kg

DRUGS (32)
  1. CYCLOPHOSPHAMIDE [Suspect]
     Active Substance: CYCLOPHOSPHAMIDE
     Dosage: 40 MG/KG, QD, DOSAGE FORM: INJECTION
     Route: 065
     Dates: start: 20220606, end: 20220606
  2. URSODIOL [Concomitant]
     Active Substance: URSODIOL
     Indication: Hepatic function abnormal
     Dosage: 200 MG, Q 8 H
     Route: 048
     Dates: start: 20220601
  3. URSODIOL [Concomitant]
     Active Substance: URSODIOL
     Dosage: 100 MG, Q 8 H
     Route: 048
     Dates: start: 20231004
  4. URSODIOL [Concomitant]
     Active Substance: URSODIOL
     Dosage: 200 MG, Q 8 H
     Route: 048
     Dates: start: 20231115
  5. MIYA-BM [Concomitant]
     Active Substance: CLOSTRIDIUM BUTYRICUM SPORES STRAIN M-55
     Indication: Dysbiosis
     Dosage: 1 DOSAGE FORM, Q 8H
     Route: 048
     Dates: start: 20220803
  6. FUROSEMIDE [Concomitant]
     Active Substance: FUROSEMIDE
     Indication: Oedema
     Dosage: 10 MG, QD
     Route: 048
     Dates: start: 20220914
  7. VONOPRAZAN FUMARATE [Concomitant]
     Active Substance: VONOPRAZAN FUMARATE
     Indication: Prophylaxis against gastrointestinal ulcer
     Dosage: 10 MG, QD
     Route: 048
     Dates: start: 20220610
  8. FLOPROPIONE [Concomitant]
     Active Substance: FLOPROPIONE
     Indication: Hypercholia
     Dosage: 80 MG, Q 8H
     Route: 048
     Dates: start: 20220620
  9. TACROLIMUS [Concomitant]
     Active Substance: TACROLIMUS
     Indication: Prophylaxis against transplant rejection
     Dosage: 2 MG, QD
     Route: 048
     Dates: start: 20230308
  10. TACROLIMUS [Concomitant]
     Active Substance: TACROLIMUS
     Dosage: 1.5 MG, (0.33/WEEK)
     Route: 048
     Dates: start: 20230721
  11. TACROLIMUS [Concomitant]
     Active Substance: TACROLIMUS
     Dosage: 1 MG, 0.33 WK
     Route: 048
     Dates: start: 20230816
  12. TACROLIMUS [Concomitant]
     Active Substance: TACROLIMUS
     Dosage: 1 MG, 0.5 WK
     Route: 048
     Dates: start: 20230913
  13. TACROLIMUS [Concomitant]
     Active Substance: TACROLIMUS
     Dosage: 1 MG/DAY TWICE A WEEK
     Route: 065
  14. TACROLIMUS [Concomitant]
     Active Substance: TACROLIMUS
     Dosage: 1 MG, QD
     Route: 048
     Dates: start: 20240131
  15. ASPIRIN [Concomitant]
     Active Substance: ASPIRIN
     Indication: Thrombosis prophylaxis
     Dosage: 100 MG, QD
     Route: 048
     Dates: start: 20221202
  16. ELDECALCITOL [Concomitant]
     Active Substance: ELDECALCITOL
     Indication: Osteoporosis prophylaxis
     Dosage: 0.75 UG, QD
     Route: 048
     Dates: start: 20230329
  17. MEDROL [Concomitant]
     Active Substance: METHYLPREDNISOLONE
     Indication: Hepatic function abnormal
     Dosage: 8 MG, QD
     Route: 048
     Dates: start: 20230621
  18. MEDROL [Concomitant]
     Active Substance: METHYLPREDNISOLONE
     Indication: Alanine aminotransferase increased
     Dosage: 4 MG, QD
     Route: 048
     Dates: start: 20230707
  19. MEDROL [Concomitant]
     Active Substance: METHYLPREDNISOLONE
     Dosage: 2 MG, QD
     Route: 048
     Dates: start: 20230721
  20. MEDROL [Concomitant]
     Active Substance: METHYLPREDNISOLONE
     Dosage: 4 MG, 12 H
     Route: 048
     Dates: start: 20231025
  21. LOXOPROFEN SODIUM [Concomitant]
     Active Substance: LOXOPROFEN SODIUM
     Indication: Back pain
     Dosage: 100 MG
     Route: 062
     Dates: start: 20220928
  22. JARDIANCE [Concomitant]
     Active Substance: EMPAGLIFLOZIN
     Indication: Type 2 diabetes mellitus
     Dosage: 10 MG, QD
     Route: 048
     Dates: start: 20221012
  23. MITIGLINIDE CALCIUM ANHYDROUS [Concomitant]
     Active Substance: MITIGLINIDE CALCIUM ANHYDROUS
     Indication: Type 2 diabetes mellitus
     Dosage: 10 MG, Q8H
     Route: 048
     Dates: start: 20221012
  24. NAFTOPIDIL [Concomitant]
     Active Substance: NAFTOPIDIL
     Indication: Benign prostatic hyperplasia
     Dosage: 50 MG, QD
     Route: 048
     Dates: start: 20230309
  25. RINDERON VG [Concomitant]
     Active Substance: BETAMETHASONE VALERATE\GENTAMICIN SULFATE
     Indication: Eczema
     Dosage: UNK, QD
     Route: 062
     Dates: start: 20230309
  26. GLYCOSAMINOGLYCANS [Concomitant]
     Active Substance: GLYCOSAMINOGLYCANS
     Indication: Dry skin prophylaxis
     Dosage: UNK, QD
     Route: 062
     Dates: start: 20220705
  27. Pabron [Concomitant]
     Indication: Pyrexia
     Dosage: UNK
     Route: 048
  28. Pabron [Concomitant]
     Route: 048
  29. APRONALIDE\CAFFEINE\IBUPROFEN [Concomitant]
     Active Substance: APRONALIDE\CAFFEINE\IBUPROFEN
     Indication: Pyrexia
     Dosage: UNK
     Route: 048
  30. APRONALIDE\CAFFEINE\IBUPROFEN [Concomitant]
     Active Substance: APRONALIDE\CAFFEINE\IBUPROFEN
     Route: 048
  31. LOCOID [Concomitant]
     Active Substance: HYDROCORTISONE BUTYRATE
     Indication: Eczema
     Dosage: UNK
     Route: 062
     Dates: start: 20231025
  32. CLOBETASOL [Concomitant]
     Active Substance: CLOBETASOL
     Indication: Eczema
     Dosage: SCALP
     Route: 062
     Dates: start: 20231025

REACTIONS (5)
  - Transplant rejection [Recovered/Resolved]
  - Transplant rejection [Recovered/Resolved]
  - Hepatic function abnormal [Recovered/Resolved]
  - Jaundice [Unknown]
  - COVID-19 [Recovered/Resolved]

NARRATIVE: CASE EVENT DATE: 20230726
